FAERS Safety Report 11157566 (Version 2)
Quarter: 2015Q2

REPORT INFORMATION
  Report Type: Spontaneous
  Country: US (occurrence: US)
  Receive Date: 20150603
  Receipt Date: 20150609
  Transmission Date: 20150821
  Serious: No
  Sender: FDA-Public Use
  Company Number: US-009507513-1506USA001305

PATIENT
  Age: 76 Year
  Sex: Female

DRUGS (4)
  1. BELSOMRA [Suspect]
     Active Substance: SUVOREXANT
     Indication: INSOMNIA
     Dosage: 10 MG, THE PATIENT CUT A 20 MG TABLET IN HALF, TWO HOURS LATER TOOK THE SECOND HALF OF THE TABLET
     Route: 048
     Dates: start: 20150529, end: 20150529
  2. NORVASC [Concomitant]
     Active Substance: AMLODIPINE BESYLATE
  3. BELSOMRA [Suspect]
     Active Substance: SUVOREXANT
     Dosage: UNK
     Route: 048
     Dates: start: 20150530
  4. TOPROL XL [Concomitant]
     Active Substance: METOPROLOL SUCCINATE

REACTIONS (3)
  - Wrong technique in drug usage process [Unknown]
  - Pollakiuria [Recovering/Resolving]
  - Weight decreased [Recovering/Resolving]

NARRATIVE: CASE EVENT DATE: 20150529
